FAERS Safety Report 4578176-5 (Version None)
Quarter: 2005Q1

REPORT INFORMATION
  Report Type: 
  Country: None (occurrence: None)
  Receive Date: 20050202
  Receipt Date: 20050202
  Transmission Date: 20050727
  Serious: Yes (Hospitalization)
  Sender: FDA-Public Use
  Company Number: None

PATIENT
  Age: 90 Year
  Sex: Female
  Weight: 25.4014 kg

DRUGS (5)
  1. LESCOL [Suspect]
     Indication: HYPERCHOLESTEROLAEMIA
     Dosage: DOSE NOT DOCUMENTED
  2. METOPROLOL [Concomitant]
  3. HYDROCHLOROTHIAZIDE [Concomitant]
  4. IMDUR [Concomitant]
  5. LISINOPRIL [Concomitant]

REACTIONS (4)
  - CHILLS [None]
  - CHOLESTASIS [None]
  - HEPATITIS [None]
  - LETHARGY [None]
